FAERS Safety Report 14614260 (Version 1)
Quarter: 2018Q1

REPORT INFORMATION
  Report Type: Spontaneous
  Country: US (occurrence: US)
  Receive Date: 20180308
  Receipt Date: 20180308
  Transmission Date: 20180509
  Serious: Yes (Other)
  Sender: FDA-Public Use
  Company Number: US-SA-2018SA063223

PATIENT
  Age: 48 Year
  Sex: Male

DRUGS (7)
  1. NAPROXEN. [Concomitant]
     Active Substance: NAPROXEN
     Route: 065
  2. LITHIUM CARBONATE. [Concomitant]
     Active Substance: LITHIUM CARBONATE
     Route: 065
  3. PAROXETINE. [Concomitant]
     Active Substance: PAROXETINE
     Route: 065
  4. AUBAGIO [Suspect]
     Active Substance: TERIFLUNOMIDE
     Indication: MULTIPLE SCLEROSIS
     Route: 048
     Dates: start: 2016
  5. GABAPENTIN. [Concomitant]
     Active Substance: GABAPENTIN
     Route: 065
  6. RISPERDAL [Concomitant]
     Active Substance: RISPERIDONE
     Route: 065
  7. PRILOSEC OTC [Concomitant]
     Active Substance: OMEPRAZOLE MAGNESIUM
     Dosage: 20 MG TABLET DR
     Route: 065

REACTIONS (4)
  - Bipolar disorder [Unknown]
  - Feeling of despair [Unknown]
  - Depression [Unknown]
  - Decreased interest [Unknown]

NARRATIVE: CASE EVENT DATE: 201801
